FAERS Safety Report 9170245 (Version 1)
Quarter: 2013Q1

REPORT INFORMATION
  Report Type: Spontaneous
  Country: AU (occurrence: AU)
  Receive Date: 20130319
  Receipt Date: 20130319
  Transmission Date: 20140127
  Serious: Yes (Other)
  Sender: FDA-Public Use
  Company Number: PHHY2013AU026303

PATIENT
  Sex: Male

DRUGS (7)
  1. LAMISIL [Suspect]
     Dosage: UNK UKN, UNK
  2. CRESTOR [Concomitant]
     Dosage: UNK UKN, UNK
  3. EZETROL [Concomitant]
     Dosage: UNK UKN, UNK
  4. KARVEZIDE [Concomitant]
     Dosage: 300/12.5
  5. WARFARIN SODIUM [Concomitant]
     Dosage: UNK UKN, UNK
  6. SOMAC [Concomitant]
  7. ZANIDIP [Concomitant]

REACTIONS (2)
  - Hypertension [Unknown]
  - Muscle spasms [Unknown]
